FAERS Safety Report 4530935-0 (Version None)
Quarter: 2004Q4

REPORT INFORMATION
  Report Type: 
  Country: None (occurrence: None)
  Receive Date: 20041217
  Receipt Date: 20040720
  Transmission Date: 20050328
  Serious: Yes (Hospitalization)
  Sender: FDA-Public Use
  Company Number: US-MERCK-0407USA01739

PATIENT
  Age: 60 Year
  Sex: Male
  Weight: 99 kg

DRUGS (7)
  1. VIOXX [Suspect]
     Indication: NECK PAIN
     Route: 048
     Dates: start: 20000101, end: 20010101
  2. VIOXX [Suspect]
     Indication: BACK PAIN
     Route: 048
     Dates: start: 20000101, end: 20010101
  3. PEPCID [Concomitant]
     Route: 065
  4. ASPIRIN [Concomitant]
     Route: 065
  5. FLEXERIL [Concomitant]
     Route: 048
  6. ZOCOR [Concomitant]
     Route: 048
  7. [THERAPY UNSPECIFIED] [Concomitant]
     Route: 065

REACTIONS (26)
  - ACUTE MYOCARDIAL INFARCTION [None]
  - ADVERSE EVENT [None]
  - ANXIETY [None]
  - ASBESTOSIS [None]
  - BRONCHITIS [None]
  - BURNING SENSATION [None]
  - CARDIAC ARREST [None]
  - CARDIAC FAILURE CONGESTIVE [None]
  - CHEST PAIN [None]
  - CHRONIC SINUSITIS [None]
  - CORONARY ARTERY ATHEROSCLEROSIS [None]
  - CORONARY ARTERY DISEASE [None]
  - EMOTIONAL DISTRESS [None]
  - EYE PRURITUS [None]
  - HEPATIC STEATOSIS [None]
  - LACRIMATION INCREASED [None]
  - LOWER RESPIRATORY TRACT INFECTION [None]
  - MITRAL VALVE PROLAPSE [None]
  - PAPILLOEDEMA [None]
  - PNEUMONIA [None]
  - PRURITUS [None]
  - ROAD TRAFFIC ACCIDENT [None]
  - SINUSITIS [None]
  - UPPER RESPIRATORY TRACT INFECTION [None]
  - VENTRICULAR FIBRILLATION [None]
  - VIRAL INFECTION [None]
